FAERS Safety Report 16803422 (Version 1)
Quarter: 2019Q3

REPORT INFORMATION
  Report Type: Spontaneous
  Country: US (occurrence: US)
  Receive Date: 20190913
  Receipt Date: 20190913
  Transmission Date: 20191005
  Serious: No
  Sender: FDA-Public Use
  Company Number: US-ASTRAZENECA-2019SF29833

PATIENT
  Age: 47 Year
  Sex: Female
  Weight: 43.9 kg

DRUGS (1)
  1. NEXIUM [Suspect]
     Active Substance: ESOMEPRAZOLE MAGNESIUM
     Dosage: 40.0MG UNKNOWN
     Route: 048

REACTIONS (5)
  - Scoliosis [Unknown]
  - Osteoporosis [Unknown]
  - Hyperchlorhydria [Unknown]
  - Abdominal discomfort [Unknown]
  - Wrong technique in product usage process [Unknown]
